FAERS Safety Report 10749693 (Version 1)
Quarter: 2015Q1

REPORT INFORMATION
  Report Type: Spontaneous
  Country: US (occurrence: US)
  Receive Date: 20150129
  Receipt Date: 20150129
  Transmission Date: 20150721
  Serious: Yes (Hospitalization, Other)
  Sender: FDA-Public Use
  Company Number: US-PFIZER INC-2015032360

PATIENT
  Sex: Female

DRUGS (1)
  1. LIPITOR [Suspect]
     Active Substance: ATORVASTATIN CALCIUM
     Dosage: UNK

REACTIONS (10)
  - Paralysis [Unknown]
  - Dysarthria [Unknown]
  - Neck pain [Unknown]
  - Chromaturia [Unknown]
  - Muscle disorder [Unknown]
  - Activities of daily living impaired [Unknown]
  - Asthenia [Unknown]
  - Fatigue [Unknown]
  - Abasia [Unknown]
  - Musculoskeletal pain [Unknown]
